FAERS Safety Report 14128241 (Version 1)
Quarter: 2017Q4

REPORT INFORMATION
  Report Type: Spontaneous
  Country: US (occurrence: None)
  Receive Date: 20171024
  Receipt Date: 20171024
  Transmission Date: 20180321
  Serious: Yes (Life-Threatening, Hospitalization, Disabling, Other)
  Sender: FDA-Public Use
  Company Number: None

PATIENT
  Sex: Female
  Weight: 79.83 kg

DRUGS (3)
  1. NEXPLANON [Suspect]
     Active Substance: ETONOGESTREL
     Dates: start: 20140909
  2. CARVEDILOL. [Concomitant]
     Active Substance: CARVEDILOL
  3. LISINOPRIL. [Concomitant]
     Active Substance: LISINOPRIL

REACTIONS (12)
  - Chest pain [None]
  - Scar [None]
  - Hormone level abnormal [None]
  - Palpitations [None]
  - Ovarian cyst [None]
  - Depression [None]
  - Nausea [None]
  - Acne [None]
  - Hypertension [None]
  - Menstruation irregular [None]
  - Anxiety [None]
  - Breast pain [None]

NARRATIVE: CASE EVENT DATE: 20170501
